FAERS Safety Report 13803519 (Version 4)
Quarter: 2017Q3

REPORT INFORMATION
  Report Type: Spontaneous
  Country: US (occurrence: US)
  Receive Date: 20170728
  Receipt Date: 20170830
  Transmission Date: 20171127
  Serious: No
  Sender: FDA-Public Use
  Company Number: US-009507513-1707USA011444

PATIENT

DRUGS (1)
  1. NUVARING [Suspect]
     Active Substance: ETHINYL ESTRADIOL\ETONOGESTREL
     Dosage: CONTINUOUSLY FOR 3 WEEKS/1 WEEK RING FREE
     Route: 067

REACTIONS (2)
  - No adverse event [Unknown]
  - Product storage error [Unknown]
